FAERS Safety Report 4325563-6 (Version None)
Quarter: 2004Q1

REPORT INFORMATION
  Report Type: 
  Country: None (occurrence: None)
  Receive Date: 20040324
  Receipt Date: 20040305
  Transmission Date: 20041129
  Serious: Yes (Hospitalization, Other)
  Sender: FDA-Public Use
  Company Number: USA040361002

PATIENT
  Age: 71 Year
  Sex: Male

DRUGS (4)
  1. HUMALOG [Suspect]
     Dosage: 4 U/1 DAY
  2. HUMULIN N [Suspect]
     Dosage: 18 U/1 DAY
  3. ACTOS [Concomitant]
  4. PLAVIX [Concomitant]

REACTIONS (10)
  - APPENDICITIS PERFORATED [None]
  - BLINDNESS [None]
  - CATARACT [None]
  - CHOLECYSTITIS INFECTIVE [None]
  - DIABETIC RETINOPATHY [None]
  - DIALYSIS [None]
  - GLAUCOMA [None]
  - MYOCARDIAL INFARCTION [None]
  - PERITONITIS [None]
  - TRANSIENT ISCHAEMIC ATTACK [None]
